FAERS Safety Report 9921787 (Version 1)
Quarter: 2014Q1

REPORT INFORMATION
  Report Type: Spontaneous
  Country: US (occurrence: None)
  Receive Date: 20140221
  Receipt Date: 20140221
  Transmission Date: 20141002
  Serious: Yes (Other)
  Sender: FDA-Public Use
  Company Number: None

PATIENT
  Age: 69 Year
  Sex: Male
  Weight: 79.38 kg

DRUGS (2)
  1. APAP/CODEINE [Suspect]
     Indication: FACIAL BONES FRACTURE
     Route: 048
     Dates: start: 20140114, end: 20140119
  2. SIMVASTATIN [Concomitant]

REACTIONS (1)
  - Constipation [None]
